FAERS Safety Report 20281621 (Version 1)
Quarter: 2022Q1

REPORT INFORMATION
  Report Type: Spontaneous
  Country: US (occurrence: None)
  Receive Date: 20220102
  Receipt Date: 20220102
  Transmission Date: 20220423
  Serious: No
  Sender: FDA-Public Use
  Company Number: None

PATIENT
  Age: 60 Year
  Sex: Male
  Weight: 68.49 kg

DRUGS (1)
  1. SULFAMETHOXAZOLE\TRIMETHOPRIM [Suspect]
     Active Substance: SULFAMETHOXAZOLE\TRIMETHOPRIM
     Dates: start: 20211003, end: 20211003

REACTIONS (4)
  - Pyrexia [None]
  - Rash [None]
  - Stevens-Johnson syndrome [None]
  - Rash vesicular [None]

NARRATIVE: CASE EVENT DATE: 20211006
